FAERS Safety Report 12528269 (Version 2)
Quarter: 2016Q3

REPORT INFORMATION
  Report Type: Report from Study
  Country: NL (occurrence: NL)
  Receive Date: 20160705
  Receipt Date: 20160927
  Transmission Date: 20161109
  Serious: Yes (Other)
  Sender: FDA-Public Use
  Company Number: NL-ABBVIE-16K-114-1665608-00

PATIENT
  Age: 85 Year
  Sex: Male

DRUGS (3)
  1. DUODOPA [Suspect]
     Active Substance: CARBIDOPA\LEVODOPA
     Indication: PARKINSON^S DISEASE
     Dosage: MORNING DOSE: 10.0, CONTINUOUS DOSE: 6.0, EXTRA DOSE: 4.6
     Route: 050
     Dates: start: 20131011
  2. EXELON [Suspect]
     Active Substance: RIVASTIGMINE TARTRATE
     Dosage: DOSE INCREASE
     Route: 065
  3. EXELON [Suspect]
     Active Substance: RIVASTIGMINE TARTRATE
     Indication: PRODUCT USED FOR UNKNOWN INDICATION
     Route: 065

REACTIONS (16)
  - Postoperative wound complication [Recovered/Resolved]
  - Hallucination [Not Recovered/Not Resolved]
  - Stoma site discharge [Recovered/Resolved]
  - Abdominal hernia [Not Recovered/Not Resolved]
  - Stoma site discomfort [Recovered/Resolved]
  - Stoma site discharge [Recovered/Resolved]
  - On and off phenomenon [Not Recovered/Not Resolved]
  - Stoma site discomfort [Recovered/Resolved]
  - Stoma site discharge [Recovered/Resolved]
  - Dyskinesia [Recovered/Resolved]
  - Stoma site irritation [Recovered/Resolved]
  - Grimacing [Not Recovered/Not Resolved]
  - Fibroma [Recovered/Resolved]
  - Stoma site irritation [Recovered/Resolved]
  - Dystonia [Not Recovered/Not Resolved]
  - Postoperative wound complication [Recovered/Resolved]

NARRATIVE: CASE EVENT DATE: 201604
